FAERS Safety Report 4771604-1 (Version None)
Quarter: 2005Q3

REPORT INFORMATION
  Report Type: 
  Country: None (occurrence: None)
  Receive Date: 20050913
  Receipt Date: 20050913
  Transmission Date: 20060218
  Serious: Yes (Death, Hospitalization)
  Sender: FDA-Public Use
  Company Number: None

PATIENT
  Sex: Female
  Weight: 111 kg

DRUGS (4)
  1. FLUOROURACIL [Suspect]
     Indication: BREAST CANCER
     Dosage: SEE IMAGE
     Route: 042
     Dates: start: 20050826, end: 20050826
  2. EPIRUBICIN [Suspect]
     Dosage: SEE IMAGE
     Route: 042
     Dates: start: 20050826, end: 20050826
  3. CYCLOPHOSPHAMIDE [Suspect]
     Dosage: SEE IMAGE
     Route: 042
     Dates: start: 20050826, end: 20050826
  4. CELECOXIB [Suspect]
     Dosage: SEE IMAGE
     Route: 048
     Dates: start: 20050826

REACTIONS (1)
  - FEBRILE NEUTROPENIA [None]
